FAERS Safety Report 19131952 (Version 1)
Quarter: 2021Q2

REPORT INFORMATION
  Report Type: Spontaneous
  Country: CA (occurrence: CA)
  Receive Date: 20210413
  Receipt Date: 20210413
  Transmission Date: 20210717
  Serious: Yes (Other)
  Sender: FDA-Public Use
  Company Number: CA-GLAXOSMITHKLINE-CACH2021AMR017912

PATIENT
  Age: 30 Year
  Sex: Female

DRUGS (2)
  1. ADVIL [Suspect]
     Active Substance: IBUPROFEN
     Indication: PAIN
     Dosage: UNK
     Route: 065
  2. FREMANEZUMAB [Suspect]
     Active Substance: FREMANEZUMAB
     Indication: MIGRAINE PROPHYLAXIS
     Dosage: 225 MG (EVERY 1 MONTHS)
     Route: 058

REACTIONS (7)
  - Blood disorder [Unknown]
  - Incorrect dose administered [Unknown]
  - Neck pain [Unknown]
  - Decreased activity [Unknown]
  - Vein rupture [Unknown]
  - Torticollis [Unknown]
  - Injection site haemorrhage [Unknown]
